FAERS Safety Report 22592174 (Version 1)
Quarter: 2023Q2

REPORT INFORMATION
  Report Type: Spontaneous
  Country: US (occurrence: US)
  Receive Date: 20230613
  Receipt Date: 20230613
  Transmission Date: 20230721
  Serious: No
  Sender: FDA-Public Use
  Company Number: US-GLAXOSMITHKLINE-USCH2023027887

PATIENT
  Age: 37 Year

DRUGS (2)
  1. ADVIL [Suspect]
     Active Substance: IBUPROFEN
     Indication: Headache
     Dosage: UNK (4 TO 6 TABLETS PER DAY)
     Dates: start: 20230520, end: 20230607
  2. ADVIL [Suspect]
     Active Substance: IBUPROFEN
     Indication: Pain

REACTIONS (1)
  - Drug ineffective [Unknown]

NARRATIVE: CASE EVENT DATE: 20230101
